FAERS Safety Report 8508357-7 (Version None)
Quarter: 2012Q3

REPORT INFORMATION
  Report Type: 
  Country: None (occurrence: None)
  Receive Date: 20120713
  Receipt Date: 20120629
  Transmission Date: 20120928
  Serious: Yes (Other)
  Sender: FDA-Public Use
  Company Number: PHHY2011CA81049

PATIENT
  Sex: Female

DRUGS (1)
  1. SANDOSTATIN LAR [Suspect]
     Indication: ACROMEGALY
     Dosage: 10 MG, EVERY 8 WEEKS
     Route: 030
     Dates: start: 20001201

REACTIONS (8)
  - FEELING HOT [None]
  - HEADACHE [None]
  - SUICIDAL IDEATION [None]
  - DEPRESSION [None]
  - EMOTIONAL DISORDER [None]
  - BACK PAIN [None]
  - ARTHRALGIA [None]
  - INJECTION SITE WARMTH [None]
